FAERS Safety Report 18926999 (Version 1)
Quarter: 2021Q1

REPORT INFORMATION
  Report Type: Spontaneous
  Country: US (occurrence: US)
  Receive Date: 20210222
  Receipt Date: 20210222
  Transmission Date: 20210420
  Serious: Yes (Other)
  Sender: FDA-Public Use
  Company Number: None

PATIENT
  Age: 38 Year
  Sex: Female

DRUGS (9)
  1. RIZATRIPTAN 5 MG ODT [Concomitant]
     Dates: start: 20190507
  2. STELARA [Suspect]
     Active Substance: USTEKINUMAB
     Dosage: ?          OTHER FREQUENCY:EVERY 30 DAYS;?
     Route: 058
  3. STELARA 90ML [Concomitant]
     Dates: start: 20190507
  4. METOPROLOL 50MG [Concomitant]
     Active Substance: METOPROLOL
     Dates: start: 20190507
  5. TOPIRAMATE 50MG [Concomitant]
     Active Substance: TOPIRAMATE
     Dates: start: 20190507
  6. PANTOPRAZOLE 40 MG [Concomitant]
     Active Substance: PANTOPRAZOLE SODIUM
     Dates: start: 20190507
  7. LABETALOL 100 MG [Concomitant]
     Active Substance: LABETALOL HYDROCHLORIDE
     Dates: start: 20201012
  8. SERTRALINE 50 MG [Concomitant]
     Active Substance: SERTRALINE HYDROCHLORIDE
     Dates: start: 20210122
  9. DICYCLOMINE 20 MG [Concomitant]
     Dates: start: 20190507

REACTIONS (1)
  - Pregnancy test positive [None]
